FAERS Safety Report 7359388-4 (Version None)
Quarter: 2011Q1

REPORT INFORMATION
  Report Type: 
  Country: None (occurrence: None)
  Receive Date: 20110317
  Receipt Date: 20110304
  Transmission Date: 20110831
  Serious: Yes (Other)
  Sender: FDA-Public Use
  Company Number: US-ACTELION-A-NJ2009-26766

PATIENT

DRUGS (2)
  1. PREDNISONE [Concomitant]
  2. TRACLEER [Suspect]
     Indication: PULMONARY ARTERIAL HYPERTENSION
     Route: 048
     Dates: start: 20080310

REACTIONS (3)
  - EATING DISORDER [None]
  - ABDOMINAL PAIN [None]
  - NAUSEA [None]
